FAERS Safety Report 8035983-4 (Version None)
Quarter: 2012Q1

REPORT INFORMATION
  Report Type: 
  Country: None (occurrence: None)
  Receive Date: 20120106
  Receipt Date: 20111221
  Transmission Date: 20120608
  Serious: Yes (Hospitalization)
  Sender: FDA-Public Use
  Company Number: 2011SP059516

PATIENT
  Age: 70 Year
  Sex: Male

DRUGS (19)
  1. PIRESPA (OTHER RESPIRATORY SYSTEM PRODUCTS) [Suspect]
     Indication: IDIOPATHIC PULMONARY FIBROSIS
     Dosage: 200 MG;TID;PO, 400 MG;TID; PO, 600 MG;TID,PO
     Route: 048
     Dates: start: 20091007, end: 20091020
  2. PIRESPA (OTHER RESPIRATORY SYSTEM PRODUCTS) [Suspect]
     Indication: IDIOPATHIC PULMONARY FIBROSIS
     Dosage: 200 MG;TID;PO, 400 MG;TID; PO, 600 MG;TID,PO
     Route: 048
     Dates: start: 20091104
  3. PIRESPA (OTHER RESPIRATORY SYSTEM PRODUCTS) [Suspect]
     Indication: IDIOPATHIC PULMONARY FIBROSIS
     Dosage: 200 MG;TID;PO, 400 MG;TID; PO, 600 MG;TID,PO
     Route: 048
     Dates: start: 20091021, end: 20091103
  4. CONIEL [Concomitant]
  5. ERYTHROCIN LACTOBIONATE [Concomitant]
  6. LIPITOR [Concomitant]
  7. BASEN [Concomitant]
  8. MUCODYNE [Concomitant]
  9. GLUFAST [Concomitant]
  10. BACTRIM [Concomitant]
  11. NITRAZEPAM [Concomitant]
  12. METFORMIN HCL [Concomitant]
  13. JANUVIA (SITAGLIPTIN PHOSPHATE HYDRATE [Concomitant]
  14. RABEPRAZOLE SODIUM [Concomitant]
  15. BONALON (ALENDRONATE SODIUM HYDRATE) [Concomitant]
  16. CLARITIN REDITABS [Suspect]
     Indication: DYSPNOEA
     Dosage: 10 MG;;PO
     Route: 048
     Dates: start: 20100413
  17. NEORAL [Concomitant]
  18. ABILIT [Concomitant]
  19. PREDNISOLONE [Concomitant]

REACTIONS (2)
  - OFF LABEL USE [None]
  - PULMONARY HYPERTENSION [None]
